FAERS Safety Report 16837384 (Version 1)
Quarter: 2019Q3

REPORT INFORMATION
  Report Type: Spontaneous
  Country: NO (occurrence: NO)
  Receive Date: 20190923
  Receipt Date: 20190923
  Transmission Date: 20191005
  Serious: Yes (Other)
  Sender: FDA-Public Use
  Company Number: NO-CELLTRION INC.-2019NO025077

PATIENT

DRUGS (1)
  1. INFLIXIMAB PFIZER (UNKNOWN) [Suspect]
     Active Substance: INFLIXIMAB

REACTIONS (1)
  - Autoimmune hepatitis [Unknown]
